FAERS Safety Report 20074469 (Version 2)
Quarter: 2021Q4

REPORT INFORMATION
  Report Type: Spontaneous
  Country: IT (occurrence: IT)
  Receive Date: 20211116
  Receipt Date: 20211119
  Transmission Date: 20220303
  Serious: Yes (Death, Hospitalization, Other)
  Sender: FDA-Public Use
  Company Number: IT-BRACCO-2021IT03586

PATIENT
  Age: 74 Year
  Sex: Male

DRUGS (20)
  1. LEVOFLOXACIN [Suspect]
     Active Substance: LEVOFLOXACIN
     Indication: COVID-19
     Dosage: UNK
  2. VANCOMYCIN [Suspect]
     Active Substance: VANCOMYCIN
     Indication: COVID-19
     Dosage: UNK
  3. OMEPRAZOLE [Suspect]
     Active Substance: OMEPRAZOLE
     Indication: COVID-19
     Dosage: UNK
  4. FUROSEMIDE [Suspect]
     Active Substance: FUROSEMIDE
     Indication: COVID-19
     Dosage: UNK
  5. AZITHROMYCIN [Suspect]
     Active Substance: AZITHROMYCIN
     Indication: COVID-19
     Dosage: UNK
  6. ROCURONIUM [Suspect]
     Active Substance: ROCURONIUM BROMIDE
     Indication: COVID-19
     Dosage: UNK
  7. TIGECYCLINE [Suspect]
     Active Substance: TIGECYCLINE
     Indication: COVID-19
     Dosage: UNK
  8. FLUCONAZOLE [Suspect]
     Active Substance: FLUCONAZOLE
     Indication: COVID-19
     Dosage: UNK
  9. ENOXAPARIN [Suspect]
     Active Substance: ENOXAPARIN
     Indication: COVID-19
     Dosage: UNK
  10. NOREPINEPHRINE [Suspect]
     Active Substance: NOREPINEPHRINE
     Indication: COVID-19
     Dosage: UNK
  11. REMIFENTANIL [Suspect]
     Active Substance: REMIFENTANIL
     Indication: COVID-19
     Dosage: UNK
  12. ACETAMINOPHEN [Suspect]
     Active Substance: ACETAMINOPHEN
     Indication: COVID-19
     Dosage: UNK
  13. CANRENONE [Suspect]
     Active Substance: CANRENONE
     Indication: COVID-19
     Dosage: UNK
  14. PROPOFOL [Suspect]
     Active Substance: PROPOFOL
     Indication: COVID-19
     Dosage: UNK
  15. IOPAMIDOL [Suspect]
     Active Substance: IOPAMIDOL
     Indication: COVID-19
     Dosage: UNK
  16. CLONAZEPAM [Suspect]
     Active Substance: CLONAZEPAM
     Indication: COVID-19
     Dosage: UNK
  17. DAPTOMYCIN [Suspect]
     Active Substance: DAPTOMYCIN
     Indication: COVID-19
     Dosage: UNK
  18. CHLORPHENIRAMINE MALEATE [Suspect]
     Active Substance: CHLORPHENIRAMINE MALEATE
     Indication: COVID-19
     Dosage: UNK
  19. HYDROXYCHLOROQUINE [Suspect]
     Active Substance: HYDROXYCHLOROQUINE
     Indication: COVID-19
     Dosage: UNK
  20. OXYGEN [Concomitant]
     Active Substance: OXYGEN
     Dosage: UNK

REACTIONS (3)
  - Drug reaction with eosinophilia and systemic symptoms [Fatal]
  - Sepsis [Fatal]
  - Off label use [Unknown]
